FAERS Safety Report 16880863 (Version 7)
Quarter: 2020Q1

REPORT INFORMATION
  Report Type: Spontaneous
  Country: US (occurrence: US)
  Receive Date: 20191003
  Receipt Date: 20200103
  Transmission Date: 20200409
  Serious: No
  Sender: FDA-Public Use
  Company Number: US-PFIZER INC-2019395285

PATIENT
  Age: 64 Year
  Sex: Female
  Weight: 88.89 kg

DRUGS (10)
  1. VITAMIN C [Concomitant]
     Active Substance: ASCORBIC ACID
     Dosage: 1000 MG, UNK
  2. CRESTOR [Concomitant]
     Active Substance: ROSUVASTATIN CALCIUM
     Indication: BLOOD PRESSURE MEASUREMENT
     Dosage: 5 MG, UNK
  3. PREMARIN [Suspect]
     Active Substance: ESTROGENS, CONJUGATED
     Indication: MENOPAUSE
     Dosage: UNK, 1X/DAY (ONCE EVERY NIGHT AT BED TIME)
     Route: 067
  4. PREMARIN [Suspect]
     Active Substance: ESTROGENS, CONJUGATED
     Indication: HOT FLUSH
  5. PREMARIN [Suspect]
     Active Substance: ESTROGENS, CONJUGATED
     Indication: HYSTERECTOMY
  6. PREMARIN [Suspect]
     Active Substance: ESTROGENS, CONJUGATED
     Indication: VULVOVAGINAL DRYNESS
     Dosage: UNK (USE IT ONCE EVERY NIGHT, ONCE A WEEK )
     Route: 067
     Dates: start: 1995, end: 201903
  7. PREMARIN [Suspect]
     Active Substance: ESTROGENS, CONJUGATED
     Indication: BLOOD PH NORMAL
  8. PREMARIN [Suspect]
     Active Substance: ESTROGENS, CONJUGATED
     Indication: OSTEOPOROSIS
  9. PREMARIN [Suspect]
     Active Substance: ESTROGENS, CONJUGATED
     Indication: FUNGAL INFECTION
  10. TYLENOL [Concomitant]
     Active Substance: ACETAMINOPHEN
     Indication: BLOOD PRESSURE MEASUREMENT
     Dosage: UNK

REACTIONS (7)
  - Nasopharyngitis [Unknown]
  - Seborrhoea [Unknown]
  - Off label use [Unknown]
  - Hypoacusis [Unknown]
  - Oropharyngeal pain [Unknown]
  - Blood pressure increased [Unknown]
  - Feeling abnormal [Unknown]
